FAERS Safety Report 10706912 (Version 1)
Quarter: 2015Q1

REPORT INFORMATION
  Report Type: Spontaneous
  Country: US (occurrence: None)
  Receive Date: 20150112
  Receipt Date: 20150112
  Transmission Date: 20150721
  Serious: No
  Sender: FDA-Public Use
  Company Number: None

PATIENT
  Age: 57 Year
  Sex: Female
  Weight: 63.5 kg

DRUGS (1)
  1. RIZATRIPTAN 10 MG TEVA [Suspect]
     Active Substance: RIZATRIPTAN
     Indication: MIGRAINE
     Dosage: 1 TABLET AS NEEDED TAKEN BY MOUTH
     Route: 048
     Dates: start: 20150109, end: 20150109

REACTIONS (6)
  - Product blister packaging issue [None]
  - Product difficult to remove [None]
  - Product quality issue [None]
  - Product physical issue [None]
  - Product substitution issue [None]
  - No therapeutic response [None]

NARRATIVE: CASE EVENT DATE: 20150109
